FAERS Safety Report 11723602 (Version 1)
Quarter: 2015Q4

REPORT INFORMATION
  Report Type: Spontaneous
  Country: FR (occurrence: FR)
  Receive Date: 20151111
  Receipt Date: 20151111
  Transmission Date: 20160304
  Serious: Yes (Hospitalization, Other)
  Sender: FDA-Public Use
  Company Number: FR-PFIZER INC-2015383394

PATIENT
  Age: 58 Year
  Sex: Female

DRUGS (8)
  1. TAZOCILLINE [Suspect]
     Active Substance: PIPERACILLIN SODIUM\TAZOBACTAM SODIUM
     Indication: PNEUMONIA ASPIRATION
     Dosage: 4 G, 3X/DAY
     Route: 042
     Dates: start: 20150827, end: 20150911
  2. ROVAMYCINE /00074401/ [Suspect]
     Active Substance: SPIRAMYCIN
     Indication: PNEUMONIA ASPIRATION
     Dosage: 3 MILLION IU, 3X/DAY
     Route: 042
     Dates: start: 20150815, end: 20150826
  3. VANCOMYCIN MYLAN [Suspect]
     Active Substance: VANCOMYCIN
     Indication: PNEUMONIA ASPIRATION
     Dosage: 500 MG, 2X/DAY
     Route: 042
     Dates: start: 20150827, end: 20150902
  4. CIFLOX /00697201/ [Suspect]
     Active Substance: CIPROFLOXACIN
     Indication: PNEUMONIA ASPIRATION
     Dosage: 500 MG, 2X/DAY
     Route: 042
     Dates: start: 20150909, end: 20150911
  5. ABILIFY [Concomitant]
     Active Substance: ARIPIPRAZOLE
     Dosage: 50 MG, 1X/DAY
  6. ZYVOXID [Suspect]
     Active Substance: LINEZOLID
     Indication: PNEUMONIA ASPIRATION
     Dosage: 500 MG, 2X/DAY
     Route: 042
     Dates: start: 20150907, end: 20150911
  7. ROCEPHINE [Suspect]
     Active Substance: CEFTRIAXONE SODIUM
     Indication: PNEUMONIA ASPIRATION
     Dosage: 1 G, DAILY
     Route: 042
     Dates: start: 20150815, end: 20150826
  8. FLAGYL [Suspect]
     Active Substance: METRONIDAZOLE\METRONIDAZOLE HYDROCHLORIDE
     Indication: PNEUMONIA ASPIRATION
     Dosage: 500 MG, 3X/DAY
     Route: 042
     Dates: start: 20150815, end: 20150826

REACTIONS (1)
  - Drug reaction with eosinophilia and systemic symptoms [Recovered/Resolved]

NARRATIVE: CASE EVENT DATE: 20150911
